FAERS Safety Report 6887706-X (Version None)
Quarter: 2010Q3

REPORT INFORMATION
  Report Type: 
  Country: None (occurrence: None)
  Receive Date: 20100730
  Receipt Date: 20100726
  Transmission Date: 20110219
  Serious: Yes (Other)
  Sender: FDA-Public Use
  Company Number: BR-ROCHE-675098

PATIENT
  Sex: Male
  Weight: 90 kg

DRUGS (8)
  1. CLONAZEPAM [Interacting]
     Indication: VERTIGO
     Route: 048
     Dates: start: 20031201, end: 20040517
  2. CLONAZEPAM [Interacting]
     Route: 048
     Dates: start: 20060101
  3. CLONAZEPAM [Suspect]
     Dosage: DOSE: 0.5 MG
     Route: 048
     Dates: start: 20091112, end: 20100210
  4. CLONAZEPAM [Interacting]
     Dosage: ADDITIONAL INDICATION: LABYRINTH DISORDER
     Route: 048
     Dates: start: 20100517, end: 20100722
  5. TEBONIN [Interacting]
     Indication: VERTIGO
     Dosage: DOSE: 120 MG, OTHER INDICATION: DIZZINESS AND IMBALANCE
     Route: 048
     Dates: start: 20060101
  6. GINKGO BILOBA [Interacting]
     Indication: VERTIGO
     Dosage: DOSE: 120 MG, FREQUENCY: 120 MG/DAY.OTHER INDICATION:LABYRINTH DISORDER, DOSE::2 TABS DAILY
     Route: 048
  7. BETASERC [Suspect]
     Dosage: DOSE REPORTED AS 16 MG
     Route: 048
  8. BETASERC [Suspect]
     Dosage: DOSAGE DECREASED
     Route: 048

REACTIONS (18)
  - ABDOMINAL PAIN UPPER [None]
  - ASTHENIA [None]
  - COORDINATION ABNORMAL [None]
  - DECREASED APPETITE [None]
  - DIARRHOEA [None]
  - DIZZINESS [None]
  - DRUG INEFFECTIVE [None]
  - DRUG INTERACTION [None]
  - DYSGEUSIA [None]
  - EMOTIONAL DISORDER [None]
  - FEELING OF DESPAIR [None]
  - FORMICATION [None]
  - INSOMNIA [None]
  - MOOD ALTERED [None]
  - NAUSEA [None]
  - PANIC REACTION [None]
  - PERIPHERAL COLDNESS [None]
  - TREMOR [None]
